FAERS Safety Report 25866135 (Version 2)
Quarter: 2025Q4

REPORT INFORMATION
  Report Type: Report from Study
  Country: EU (occurrence: EU)
  Receive Date: 20250930
  Receipt Date: 20251010
  Transmission Date: 20260118
  Serious: Yes (Death, Hospitalization, Other)
  Sender: ABBVIE
  Company Number: EU-ABBVIE-6331703

PATIENT
  Age: 74 Year
  Sex: Male

DRUGS (7)
  1. CARBIDOPA\LEVODOPA [Suspect]
     Active Substance: CARBIDOPA\LEVODOPA
     Indication: Parkinson^s disease
     Dosage: MD: 5.0 ML ED 1.3 ML/H CR: 3.7 ML/H CRN: 2.4 ML/H
     Route: 050
     Dates: start: 20211006
  2. CARBIDOPA\LEVODOPA [Suspect]
     Active Substance: CARBIDOPA\LEVODOPA
     Dosage: MD: 5.0 ML ED 1.3 ML/H CR: 3.7 ML/H CRN: 2.4 ML/H,?INCREASED THE NIGHT DOSE
     Route: 050
  3. CARBIDOPA\LEVODOPA [Suspect]
     Active Substance: CARBIDOPA\LEVODOPA
     Dosage: MD: 5.0 ML; CRT: 3.8 ML/H; CRN: 2.7ML/H; ED: 1.3 ML
     Route: 050
  4. Vitamin b duo [Concomitant]
     Indication: Product used for unknown indication
     Dosage: DOSAGE -1-0-0-0-0
  5. CLOZAPINE [Concomitant]
     Active Substance: CLOZAPINE
     Indication: Product used for unknown indication
     Dosage: DOSAGE- ? -0-0-?-0, REMARKS- EVEN IN THE MORNING
  6. CLONAZEPAM [Concomitant]
     Active Substance: CLONAZEPAM
     Indication: Product used for unknown indication
     Dosage: DOSAGE- 0-0-0-0-1
  7. DULOXETINE [Concomitant]
     Active Substance: DULOXETINE
     Indication: Product used for unknown indication
     Dosage: DOSAGE- 1-0-0-0-0

REACTIONS (17)
  - Death [Fatal]
  - Nasopharyngitis [Unknown]
  - Therapeutic product effect variable [Unknown]
  - Camptocormia [Unknown]
  - Gastrointestinal motility disorder [Not Recovered/Not Resolved]
  - On and off phenomenon [Not Recovered/Not Resolved]
  - Speech disorder [Not Recovered/Not Resolved]
  - Mobility decreased [Unknown]
  - Parkinson^s disease [Not Recovered/Not Resolved]
  - Faecaloma [Unknown]
  - Skin exfoliation [Not Recovered/Not Resolved]
  - Salivary hypersecretion [Unknown]
  - Gait disturbance [Unknown]
  - Movement disorder [Unknown]
  - Stoma site erythema [Unknown]
  - Stoma site discharge [Recovered/Resolved]
  - Pneumonia [Not Recovered/Not Resolved]

NARRATIVE: CASE EVENT DATE: 20250101
